FAERS Safety Report 4339406-8 (Version None)
Quarter: 2004Q2

REPORT INFORMATION
  Report Type: 
  Country: None (occurrence: None)
  Receive Date: 20040412
  Receipt Date: 20040405
  Transmission Date: 20050107
  Serious: Yes (Other)
  Sender: FDA-Public Use
  Company Number: 2004023611

PATIENT
  Age: 54 Year
  Sex: Female
  Weight: 50.8029 kg

DRUGS (3)
  1. BENADRYL [Suspect]
     Indication: HYPERSENSITIVITY
     Dosage: 2 TSPS 3-4 DAYS WEEKLY PRN, ORAL
     Route: 048
     Dates: start: 19940101
  2. IBUPROFEN [Concomitant]
  3. ANTIBIOTICS [Concomitant]

REACTIONS (1)
  - CARCINOMA [None]
